FAERS Safety Report 7550278-0 (Version None)
Quarter: 2011Q2

REPORT INFORMATION
  Report Type: 
  Country: None (occurrence: None)
  Receive Date: 20110615
  Receipt Date: 20110613
  Transmission Date: 20111010
  Serious: Yes (Other)
  Sender: FDA-Public Use
  Company Number: BR-ABBOTT-10P-020-0624251-00

PATIENT
  Sex: Female
  Weight: 70 kg

DRUGS (12)
  1. HUMIRA [Suspect]
     Route: 058
  2. METHOTREXATE [Concomitant]
     Indication: RHEUMATOID ARTHRITIS
     Route: 048
     Dates: start: 20060101
  3. ACETAMINOPHEN AND CODEINE PHOSPHATE [Concomitant]
  4. HUMIRA [Suspect]
     Route: 058
  5. CHLOROQUINE [Concomitant]
     Indication: RHEUMATOID ARTHRITIS
     Route: 048
     Dates: start: 20060101
  6. HUMIRA [Suspect]
     Indication: RHEUMATOID ARTHRITIS
     Dosage: INDUCTION DOSE
     Route: 058
     Dates: start: 20070101
  7. HUMIRA [Suspect]
     Dosage: INDUCTION DOSE
     Route: 058
  8. CORTICOID [Concomitant]
     Indication: PAIN
     Route: 048
     Dates: start: 20060101
  9. OMEPRAZOLE [Concomitant]
     Indication: GASTRIC DISORDER
     Route: 048
  10. ACETAMINOPHEN AND CODEINE PHOSPHATE [Concomitant]
     Indication: PAIN
     Route: 048
     Dates: start: 20060101
  11. MELOXICAM [Concomitant]
     Indication: PAIN
     Route: 048
     Dates: start: 20060101
  12. CORTICOID [Concomitant]
     Route: 048

REACTIONS (14)
  - INTERVERTEBRAL DISC PROTRUSION [None]
  - SPINAL DECOMPRESSION [None]
  - MEDICAL DEVICE COMPLICATION [None]
  - BLOOD CHOLESTEROL INCREASED [None]
  - PAIN [None]
  - FATIGUE [None]
  - ARTHRALGIA [None]
  - JOINT ARTHROPLASTY [None]
  - MALAISE [None]
  - INSOMNIA [None]
  - ANAEMIA [None]
  - DEVICE FAILURE [None]
  - DIZZINESS [None]
  - SCIATICA [None]
